FAERS Safety Report 6938522-1 (Version None)
Quarter: 2010Q3

REPORT INFORMATION
  Report Type: 
  Country: None (occurrence: None)
  Receive Date: 20100824
  Receipt Date: 20100809
  Transmission Date: 20110219
  Serious: Yes (Other)
  Sender: FDA-Public Use
  Company Number: AU-MYLANLABS-2010S1014520

PATIENT
  Age: 71 Year
  Sex: Female

DRUGS (9)
  1. LEVETIRACETAM [Suspect]
     Indication: EPILEPSY
     Route: 048
     Dates: start: 20100701
  2. KEPPRA [Concomitant]
     Indication: EPILEPSY
  3. LAMOTRIGINE [Concomitant]
     Indication: EPILEPSY
  4. LAMOGINE [Concomitant]
     Indication: EPILEPSY
  5. LIPITOR [Concomitant]
  6. LEXAPRO [Concomitant]
  7. NEXIUM [Concomitant]
  8. ACTONEL WITH CALCIUM (COPACKAGED) [Concomitant]
  9. DITROPAN [Concomitant]

REACTIONS (2)
  - CONVULSION [None]
  - PRODUCT SUBSTITUTION ISSUE [None]
